FAERS Safety Report 7941834-6 (Version None)
Quarter: 2011Q4

REPORT INFORMATION
  Report Type: 
  Country: None (occurrence: None)
  Receive Date: 20111128
  Receipt Date: 20111116
  Transmission Date: 20120403
  Serious: Yes (Hospitalization)
  Sender: FDA-Public Use
  Company Number: US-UCBSA-045989

PATIENT
  Age: 66 Year
  Sex: Female
  Weight: 59.42 kg

DRUGS (20)
  1. RANITIDINE [Suspect]
  2. CARVEDILOL [Suspect]
  3. FERGON [Suspect]
     Indication: IRON DEFICIENCY
     Route: 048
  4. MEGACE [Suspect]
     Route: 048
  5. SUNITINIB MALATE [Suspect]
  6. TESSALON [Suspect]
  7. ACTONEL [Concomitant]
  8. SIMVASTATIN [Suspect]
  9. PIOGLITAZONE HCL [Suspect]
     Route: 048
  10. ZOFRAN [Suspect]
     Dosage: 1 DOSAGE FORM EVERY 6 HOURS AS NEEDED
     Route: 048
  11. STUDY MEDICATION [Suspect]
  12. ARTIFICIAL TEAR [Concomitant]
     Route: 047
  13. CIPROFLOXACIN [Concomitant]
     Dosage: 1000 MG/10 ML
  14. EXTRA STRENGTH TYLENOL [Concomitant]
     Route: 048
  15. RADIATION [Suspect]
     Dosage: QD 5 DAYS A WEEK, X 3WEEKS EXTERNAL BEAM 2D
     Dates: start: 20090408, end: 20090401
  16. CITRATE OF MAGNESIUM [Suspect]
     Dosage: UNKNOWN DOSE BEFORE SURGERY
     Route: 048
  17. LORTAB [Suspect]
     Dosage: I DOSAGE FOR EVERY 6 HOURS AS NEEDED (5MG/500MG)
  18. AMLODIPINE [Suspect]
  19. COLACE [Suspect]
  20. ASPIRIN [Concomitant]

REACTIONS (6)
  - MALAISE [None]
  - ABDOMINAL PAIN [None]
  - HEADACHE [None]
  - COGNITIVE DISORDER [None]
  - FATIGUE [None]
  - VOMITING [None]
